APPROVED DRUG PRODUCT: RIFADIN
Active Ingredient: RIFAMPIN
Strength: 600MG/VIAL
Dosage Form/Route: INJECTABLE;INJECTION
Application: N050627 | Product #001 | TE Code: AP
Applicant: SANOFI AVENTIS US LLC
Approved: May 25, 1989 | RLD: Yes | RS: Yes | Type: RX